FAERS Safety Report 6136748-0 (Version None)
Quarter: 2009Q1

REPORT INFORMATION
  Report Type: 
  Country: None (occurrence: None)
  Receive Date: 20090325
  Receipt Date: 20090310
  Transmission Date: 20090719
  Serious: Yes (Other)
  Sender: FDA-Public Use
  Company Number: 2009S1004269

PATIENT
  Age: 17 Year
  Sex: Male

DRUGS (5)
  1. AMNESTEEM [Suspect]
     Indication: ACNE
     Dosage: 20 MG;DAILY;ORAL
     Route: 048
     Dates: start: 20081201, end: 20090201
  2. ACCUTANE [Suspect]
     Indication: ACNE
     Dosage: 10 MG;DAILY
     Dates: start: 20090101, end: 20090201
  3. AMNESTEEM [Suspect]
     Indication: ACNE
     Dosage: 40 MG;DAILY;ORAL
     Route: 048
     Dates: start: 20090201, end: 20090201
  4. CLINDA /00166002/ (CON.) [Concomitant]
  5. CLINDA /00166002/ (CON.) [Concomitant]

REACTIONS (2)
  - DEPRESSION [None]
  - SUICIDAL IDEATION [None]
